FAERS Safety Report 4382333-0 (Version None)
Quarter: 2004Q2

REPORT INFORMATION
  Report Type: 
  Country: None (occurrence: None)
  Receive Date: 20040616
  Receipt Date: 20040609
  Transmission Date: 20050107
  Serious: Yes (Hospitalization)
  Sender: FDA-Public Use
  Company Number: GBWYE761714MAY04

PATIENT
  Age: 47 Year
  Sex: Male

DRUGS (4)
  1. EFFEXOR [Suspect]
     Indication: DEPRESSION
     Dosage: 75 MG;  150 MG 1X PER 1 DAY
     Route: 048
     Dates: end: 20040428
  2. EFFEXOR [Suspect]
     Indication: DEPRESSION
     Dosage: 75 MG;  150 MG 1X PER 1 DAY
     Route: 048
     Dates: start: 20040331
  3. PROPRANOLOL [Concomitant]
  4. ZOPICLONE (ZOPICLONE) [Concomitant]

REACTIONS (3)
  - CONDITION AGGRAVATED [None]
  - DELUSION [None]
  - MAJOR DEPRESSION [None]
